FAERS Safety Report 19518559 (Version 2)
Quarter: 2021Q3

REPORT INFORMATION
  Report Type: Spontaneous
  Country: KR (occurrence: KR)
  Receive Date: 20210712
  Receipt Date: 20210720
  Transmission Date: 20211014
  Serious: Yes (Other)
  Sender: FDA-Public Use
  Company Number: KR-CELLTRION INC.-2021KR009322

PATIENT

DRUGS (1)
  1. REMSIMA [Suspect]
     Active Substance: INFLIXIMAB
     Indication: COLITIS ULCERATIVE
     Dosage: 5 MG/KG FOR 0, 2, AND 6 WEEKS (REPEATED EVERY 8 WEEKS FROM WEEK 14)
     Route: 042

REACTIONS (1)
  - Colitis ulcerative [Unknown]
